FAERS Safety Report 4831482-9 (Version None)
Quarter: 2005Q4

REPORT INFORMATION
  Report Type: 
  Country: None (occurrence: None)
  Receive Date: 20051116
  Receipt Date: 20051104
  Transmission Date: 20060501
  Serious: No
  Sender: FDA-Public Use
  Company Number: 05H-163-0303340-00

PATIENT
  Sex: Female

DRUGS (1)
  1. METOCLOPRAMIDE HYDROCHLORIDE [Suspect]
     Indication: POSTOPERATIVE CARE
     Dosage: 10 MG, ONCE, INTRAVENOUS
     Route: 042
     Dates: start: 20051001, end: 20051001

REACTIONS (2)
  - CLONUS [None]
  - MYOCARDIAL INFARCTION [None]
